FAERS Safety Report 14313730 (Version 1)
Quarter: 2017Q4

REPORT INFORMATION
  Report Type: Spontaneous
  Country: GB (occurrence: GB)
  Receive Date: 20171221
  Receipt Date: 20171221
  Transmission Date: 20180321
  Serious: Yes (Other)
  Sender: FDA-Public Use
  Company Number: GB-AUROBINDO-AUR-APL-2017-46243

PATIENT
  Age: 70 Year
  Sex: Female

DRUGS (4)
  1. THYROXINE [Concomitant]
     Active Substance: LEVOTHYROXINE
     Indication: THYROID DISORDER
     Route: 065
  2. LYRICA [Concomitant]
     Active Substance: PREGABALIN
     Indication: FIBROMYALGIA
     Dosage: AT NIGHT
     Route: 065
  3. IBUPROFEN. [Suspect]
     Active Substance: IBUPROFEN
     Indication: RHEUMATIC DISORDER
     Dosage: 200 MG, UNK
     Route: 065
     Dates: start: 2017, end: 2017
  4. NAPROXEN. [Suspect]
     Active Substance: NAPROXEN
     Indication: RHEUMATIC DISORDER
     Dosage: 500 MG, ONCE A DAY
     Route: 065

REACTIONS (5)
  - Swelling face [Recovered/Resolved]
  - Urticaria [Recovered/Resolved]
  - Contraindicated drug prescribed [Recovered/Resolved]
  - Intercepted medication error [Recovered/Resolved]
  - Hypersensitivity [Recovered/Resolved]
